FAERS Safety Report 6695268-5 (Version None)
Quarter: 2010Q2

REPORT INFORMATION
  Report Type: 
  Country: None (occurrence: None)
  Receive Date: 20100423
  Receipt Date: 20100412
  Transmission Date: 20101027
  Serious: Yes (Other)
  Sender: FDA-Public Use
  Company Number: ES-ELI_LILLY_AND_COMPANY-ES201004003049

PATIENT
  Sex: Female
  Weight: 65 kg

DRUGS (5)
  1. FORTEO [Suspect]
     Indication: OSTEOPOROSIS
     Dosage: 20 UG, DAILY (1/D)
     Route: 058
     Dates: start: 20091106
  2. ADALAT [Concomitant]
     Indication: HYPERTENSION
     Dosage: 30 MG, DAILY (1/D)
     Route: 048
  3. URSOBILANE [Concomitant]
     Indication: GALLBLADDER DISORDER
     Dosage: UNK, DAILY (1/D)
     Route: 048
  4. DURAGESIC-100 [Concomitant]
     Indication: PAIN
     Dosage: 25 MG, DAILY (1/D)
     Route: 065
  5. DICLOFENACO                        /00372302/ [Concomitant]
     Indication: ANTIINFLAMMATORY THERAPY
     Dosage: 50 MG, DAILY (1/D)
     Route: 048

REACTIONS (6)
  - ABASIA [None]
  - ASTHENIA [None]
  - BACK PAIN [None]
  - INFLAMMATION [None]
  - MUSCLE SPASMS [None]
  - SENSORY LOSS [None]
